FAERS Safety Report 9870208 (Version 2)
Quarter: 2014Q1

REPORT INFORMATION
  Report Type: Spontaneous
  Country: AT (occurrence: AT)
  Receive Date: 20140205
  Receipt Date: 20140220
  Transmission Date: 20141002
  Serious: Yes (Disabling, Other)
  Sender: FDA-Public Use
  Company Number: AT-MPIJNJ-2014JNJ000255

PATIENT
  Sex: 0

DRUGS (4)
  1. VELCADE [Suspect]
     Indication: PLASMA CELL MYELOMA
     Dosage: 2.16 MG, CYCLIC
     Route: 058
     Dates: start: 20131125, end: 20140120
  2. DEXAMETHASONE [Concomitant]
     Dosage: UNK, CYCLIC
     Dates: end: 20140120
  3. LYRICA [Concomitant]
     Dosage: 150 MG, BID
  4. PRAMIPEXOLE [Concomitant]
     Dosage: 0.18 MG, QD

REACTIONS (2)
  - Restless legs syndrome [Not Recovered/Not Resolved]
  - Polyneuropathy [Unknown]
